FAERS Safety Report 8829793 (Version 1)
Quarter: 2012Q4

REPORT INFORMATION
  Report Type: 
  Country: FR (occurrence: FR)
  Receive Date: 20121008
  Receipt Date: 20121008
  Transmission Date: 20130627
  Serious: Yes (Hospitalization)
  Sender: FDA-Public Use
  Company Number: FR-BRISTOL-MYERS SQUIBB COMPANY-17009028

PATIENT
  Age: 36 Year
  Sex: Male

DRUGS (2)
  1. COUMADINE [Suspect]
     Indication: DEEP VEIN THROMBOSIS
     Dosage: Dose incresed by 1-2mg upto 11mg
     Route: 048
     Dates: start: 20120704, end: 20120717
  2. INNOHEP INJ [Suspect]
     Indication: DEEP VEIN THROMBOSIS
     Dosage: one injection
     Route: 058
     Dates: start: 20120629, end: 20120717

REACTIONS (1)
  - Priapism [Recovered/Resolved]
